FAERS Safety Report 7910351-1 (Version None)
Quarter: 2011Q4

REPORT INFORMATION
  Report Type: 
  Country: None (occurrence: None)
  Receive Date: 20111111
  Receipt Date: 20111109
  Transmission Date: 20120403
  Serious: Yes (Death, Other)
  Sender: FDA-Public Use
  Company Number: US-AMGEN-QUU443732

PATIENT
  Sex: Female

DRUGS (2)
  1. IMMUNE GLOBULIN NOS [Concomitant]
     Dosage: UNK UNK, UNK
     Dates: start: 20090324, end: 20090325
  2. NPLATE [Suspect]
     Indication: IDIOPATHIC THROMBOCYTOPENIC PURPURA
     Dosage: UNK UNK, UNK
     Dates: start: 20090428

REACTIONS (6)
  - GASTROINTESTINAL HAEMORRHAGE [None]
  - DRUG INEFFECTIVE [None]
  - HAEMORRHAGE [None]
  - GASTROINTESTINAL DISORDER [None]
  - BLOOD PRODUCT TRANSFUSION DEPENDENT [None]
  - PETECHIAE [None]
